FAERS Safety Report 9201533 (Version 2)
Quarter: 2013Q2

REPORT INFORMATION
  Report Type: Spontaneous
  Country: US (occurrence: US)
  Receive Date: 20130401
  Receipt Date: 20130529
  Transmission Date: 20140414
  Serious: Yes (Hospitalization, Other)
  Sender: FDA-Public Use
  Company Number: US-PFIZER INC-2013099953

PATIENT
  Age: 36 Year
  Sex: Female
  Weight: 38.5 kg

DRUGS (4)
  1. XALKORI [Suspect]
     Indication: NON-SMALL CELL LUNG CANCER METASTATIC
     Dosage: 250 MG, TWO TIMES A DAY
     Route: 048
  2. AZITHROMYCIN [Concomitant]
     Dosage: 500 MG, 1X/DAY
  3. ROCEPHIN [Concomitant]
     Dosage: 1 G, EVERY 24 HOURS
  4. LOVENOX [Concomitant]
     Dosage: 40 MG, 1X/DAY

REACTIONS (7)
  - Diaphragmatic paralysis [Unknown]
  - Muscular weakness [Unknown]
  - Restrictive pulmonary disease [Unknown]
  - Bronchial obstruction [Unknown]
  - Respiratory failure [Recovering/Resolving]
  - Oesophageal stenosis [Unknown]
  - Oesophagitis [Unknown]
